FAERS Safety Report 10649683 (Version 1)
Quarter: 2014Q4

REPORT INFORMATION
  Report Type: Spontaneous
  Country: IT (occurrence: IT)
  Receive Date: 20141212
  Receipt Date: 20141212
  Transmission Date: 20150529
  Serious: Yes (Other)
  Sender: FDA-Public Use
  Company Number: IT-ACTAVIS-2014-26451

PATIENT
  Age: 74 Year
  Sex: Male

DRUGS (7)
  1. AVASTIN [Suspect]
     Active Substance: BEVACIZUMAB
     Indication: COLON CANCER METASTATIC
     Dosage: 525 MG, CYCLICAL
     Route: 042
     Dates: start: 20100728, end: 20140415
  2. MIRAPEXIN [Concomitant]
     Active Substance: PRAMIPEXOLE
     Indication: PRODUCT USED FOR UNKNOWN INDICATION
     Dosage: UNK, UNKNOWN
     Route: 065
  3. RAMIPRIL. [Concomitant]
     Active Substance: RAMIPRIL
     Indication: PRODUCT USED FOR UNKNOWN INDICATION
     Dosage: UNK, UNKNOWN
     Route: 065
  4. XELODA [Suspect]
     Active Substance: CAPECITABINE
     Indication: COLON CANCER METASTATIC
     Dosage: 3 G, DAILY
     Route: 048
     Dates: start: 20120601, end: 20140415
  5. LASIX [Concomitant]
     Active Substance: FUROSEMIDE
     Indication: PRODUCT USED FOR UNKNOWN INDICATION
     Dosage: UNK, UNKNOWN
     Route: 065
  6. OXALIPLATIN (UNKNOWN) [Suspect]
     Active Substance: OXALIPLATIN
     Indication: COLON CANCER METASTATIC
     Dosage: 180 MG, CYCLICAL
     Route: 042
     Dates: start: 20131201, end: 20140415
  7. MADOPAR [Concomitant]
     Active Substance: BENSERAZIDE HYDROCHLORIDE\LEVODOPA
     Indication: PRODUCT USED FOR UNKNOWN INDICATION
     Dosage: UNK, UNKNOWN
     Route: 065

REACTIONS (2)
  - Pulmonary embolism [Recovered/Resolved]
  - Deep vein thrombosis [Recovered/Resolved]

NARRATIVE: CASE EVENT DATE: 20140506
